FAERS Safety Report 18261234 (Version 2)
Quarter: 2020Q3

REPORT INFORMATION
  Report Type: Spontaneous
  Country: US (occurrence: US)
  Receive Date: 20200914
  Receipt Date: 20200922
  Transmission Date: 20201103
  Serious: Yes (Other)
  Sender: FDA-Public Use
  Company Number: US-CIPLA LTD.-2020US06332

PATIENT

DRUGS (4)
  1. TRAZODONE [Concomitant]
     Active Substance: TRAZODONE HYDROCHLORIDE
     Indication: DEPRESSION
     Dosage: 450 MILLIGRAM, QD (ONCE AT NIGHT)
     Route: 065
  2. ABILIFY [Concomitant]
     Active Substance: ARIPIPRAZOLE
     Indication: DEPRESSION
     Dosage: 40 MILLIGRAM, QD (ONCE AT NIGHT)
     Route: 065
     Dates: start: 201910
  3. SERTRALINE [Suspect]
     Active Substance: SERTRALINE HYDROCHLORIDE
     Indication: OBSESSIVE-COMPULSIVE DISORDER
     Dosage: 200 MILLIGRAM, BID
     Route: 048
     Dates: start: 2020, end: 202009
  4. SERTRALINE [Suspect]
     Active Substance: SERTRALINE HYDROCHLORIDE
     Indication: DEPRESSION
     Dosage: 100 MILLIGRAM, BID
     Route: 048
     Dates: start: 2010, end: 2020

REACTIONS (7)
  - Amnesia [Not Recovered/Not Resolved]
  - Energy increased [Unknown]
  - Product use in unapproved indication [Unknown]
  - Condition aggravated [Unknown]
  - Disturbance in attention [Not Recovered/Not Resolved]
  - Off label use [Unknown]
  - Hypomania [Unknown]

NARRATIVE: CASE EVENT DATE: 2010
